FAERS Safety Report 26146741 (Version 1)
Quarter: 2025Q4

REPORT INFORMATION
  Report Type: Spontaneous
  Country: EU (occurrence: EU)
  Receive Date: 20251211
  Receipt Date: 20251211
  Transmission Date: 20260117
  Serious: Yes (Other)
  Sender: NOVARTIS
  Company Number: EU-ML39632-2674599-0

PATIENT
  Sex: Female

DRUGS (19)
  1. OFATUMUMAB [Suspect]
     Active Substance: OFATUMUMAB
     Indication: Relapsing multiple sclerosis
     Dosage: UNK
     Route: 065
     Dates: start: 20240615
  2. OCREVUS [Suspect]
     Active Substance: OCRELIZUMAB
     Indication: Relapsing multiple sclerosis
     Dosage: 300 MG
     Route: 042
     Dates: start: 20220324, end: 20220407
  3. OCREVUS [Suspect]
     Active Substance: OCRELIZUMAB
     Dosage: 600 MG
     Route: 042
     Dates: start: 20221006, end: 20231018
  4. BACLOFEN [Concomitant]
     Active Substance: BACLOFEN
     Indication: Muscle spasticity
     Dosage: 12.5 MG, BID
     Route: 048
     Dates: end: 202304
  5. BACLOFEN [Concomitant]
     Active Substance: BACLOFEN
     Dosage: 25 MG, QD
     Route: 048
     Dates: end: 202304
  6. BACLOFEN [Concomitant]
     Active Substance: BACLOFEN
     Dosage: 10 MG, (0.33 D)
     Route: 048
     Dates: start: 202304
  7. PREGABALIN [Concomitant]
     Active Substance: PREGABALIN
     Indication: Neuralgia
     Dosage: 150 MG, BID
     Route: 048
     Dates: start: 202404
  8. PREGABALIN [Concomitant]
     Active Substance: PREGABALIN
     Dosage: 175 MG, BID
     Route: 048
     Dates: end: 202404
  9. PREGABALIN [Concomitant]
     Active Substance: PREGABALIN
     Dosage: 150 MG, QD
     Route: 048
     Dates: end: 202404
  10. DIMETHINDENE [Concomitant]
     Active Substance: DIMETHINDENE
     Indication: Premedication
     Dosage: 4 MG, AS NECESSARY (DEFINITION OF THE INTERVAL: AS REQUIRED)
     Route: 042
     Dates: start: 20220324
  11. SOLIFENACIN [Concomitant]
     Active Substance: SOLIFENACIN
     Indication: Hypertonic bladder
     Dosage: 5 MG, QD
     Route: 048
     Dates: start: 20221006
  12. ATORVASTATIN [Concomitant]
     Active Substance: ATORVASTATIN
     Indication: Hypercholesterolaemia
     Dosage: 20 MG, QD
     Route: 048
  13. NABIXIMOLS [Concomitant]
     Active Substance: NABIXIMOLS
     Indication: Muscle spasticity
     Dosage: 2.7 MG, (0.25 D, SPRAY)
     Route: 002
     Dates: start: 202304
  14. RAMIPRIL [Concomitant]
     Active Substance: RAMIPRIL
     Indication: Hypertension
     Dosage: 5 MG, BID
     Route: 048
     Dates: start: 202410
  15. RAMIPRIL [Concomitant]
     Active Substance: RAMIPRIL
     Dosage: 2.5 MG, QD
     Route: 048
     Dates: end: 202410
  16. ACETAMINOPHEN [Concomitant]
     Active Substance: ACETAMINOPHEN
     Indication: Premedication
     Dosage: 1000 MG, AS NECESSARY (DEFINITION OF THE INTERVAL: AS REQUIRED)
     Route: 048
     Dates: start: 20220324
  17. NABIXIMOLS [Concomitant]
     Active Substance: NABIXIMOLS
     Indication: Musculoskeletal stiffness
     Dosage: 4 DOSAGE FORM, AS NECESSARY (DEFINITION OF THE INTERVAL: AS REQUIRED)
     Route: 007
     Dates: start: 202310
  18. METHYLPREDNISOLONE [Concomitant]
     Active Substance: METHYLPREDNISOLONE
     Indication: Premedication
     Dosage: 100 MG (DEFINITION OF THE INTERVAL: AS REQUIRED)
     Route: 042
     Dates: start: 20220324
  19. LIDOCAINE [Concomitant]
     Active Substance: LIDOCAINE
     Indication: Herpes zoster
     Dosage: 700 MG (AS NECESSARY), (DEFINITION OF THE INTERVAL: AS REQUIRED)
     Route: 003
     Dates: start: 202401

REACTIONS (1)
  - Pneumonia [Recovered/Resolved]
